FAERS Safety Report 4952579-9 (Version None)
Quarter: 2006Q1

REPORT INFORMATION
  Report Type: 
  Country: None (occurrence: None)
  Receive Date: 20060317
  Receipt Date: 20060307
  Transmission Date: 20060701
  Serious: Yes (Hospitalization)
  Sender: FDA-Public Use
  Company Number: A044-002-005985

PATIENT
  Age: 81 Year
  Sex: Female

DRUGS (5)
  1. ARICEPT [Suspect]
     Indication: DEMENTIA ALZHEIMER'S TYPE
     Dosage: 10 MG, 1 IN 1 D, ORAL
     Route: 048
     Dates: start: 20051101, end: 20060101
  2. HYTACAND (BLOPRESS PLUS) [Concomitant]
  3. ZANIDIP (LERCANIDIPINE HYDROCHLORIDE) [Concomitant]
  4. ALLOPURINOL [Concomitant]
  5. PRAZEPAM [Concomitant]

REACTIONS (4)
  - ARRHYTHMIA [None]
  - CONDUCTION DISORDER [None]
  - MALAISE [None]
  - VENTRICULAR EXTRASYSTOLES [None]
